FAERS Safety Report 20469895 (Version 3)
Quarter: 2023Q2

REPORT INFORMATION
  Report Type: Spontaneous
  Country: US (occurrence: US)
  Receive Date: 20220214
  Receipt Date: 20230606
  Transmission Date: 20230722
  Serious: Yes (Other)
  Sender: FDA-Public Use
  Company Number: US-PFIZER INC-202101878851

PATIENT
  Age: 65 Year
  Sex: Female

DRUGS (1)
  1. XELJANZ XR [Suspect]
     Active Substance: TOFACITINIB CITRATE
     Indication: Psoriatic arthropathy
     Dosage: 11 MG, 1X/DAY

REACTIONS (9)
  - Nerve injury [Unknown]
  - Back injury [Unknown]
  - Skeletal injury [Unknown]
  - Nervous system disorder [Unknown]
  - Back disorder [Unknown]
  - Spinal disorder [Unknown]
  - Symptom recurrence [Unknown]
  - Pain [Unknown]
  - Depressed mood [Unknown]
